FAERS Safety Report 8155538-0 (Version None)
Quarter: 2012Q1

REPORT INFORMATION
  Report Type: 
  Country: None (occurrence: None)
  Receive Date: 20120215
  Receipt Date: 20120203
  Transmission Date: 20120608
  Serious: Yes (Hospitalization)
  Sender: FDA-Public Use
  Company Number: 1000028224

PATIENT
  Sex: Male

DRUGS (9)
  1. DIGOXIN [Concomitant]
  2. ESCITALOPRAM [Suspect]
     Indication: DEPRESSION
     Dosage: 10 MG (10 MG, 1 IN 1 D), ORAL
     Route: 048
  3. DISTRANEURIN (CLOMETHIAZOLE) (200 MILLIGRAM, CAPSULES) (CLOMETHIAZOLE) [Concomitant]
  4. CARVEDILOL (CARVEDILOL) (3 MILLIGRAM, TABLETS) (CARVEDILOL) [Concomitant]
  5. ESCITALOPRAM [Suspect]
     Indication: DEPRESSION
     Dosage: 5 MG (5 MG, 1 IN 1 D), ORAL
     Route: 048
  6. IRON (III) - HYDROXIDE (IRON (III) - HYDROXIDE) (100 MILLIGRAM) (IRON [Concomitant]
  7. LITALIR (HYDROXYCARBAMIDE) (500 MILLIGRAM, TABLETS) (HYDROXYCARBAMIDE) [Concomitant]
  8. PANTOPRAZOLE (PANTOPRAZOLE) (20 MILLIGRAM, TABLETS) (PANTOPRAZOLE) [Concomitant]
  9. ACETYLSALICYLIC ACID (ACETYLSALICYLIC ACID) (100 MILLIGRAM, TABLETS) ( [Concomitant]

REACTIONS (14)
  - HALLUCINATION, VISUAL [None]
  - HALLUCINATION, OLFACTORY [None]
  - MENTAL DISORDER [None]
  - FATIGUE [None]
  - INSOMNIA [None]
  - GASTROOESOPHAGEAL REFLUX DISEASE [None]
  - ACUTE MYOCARDIAL INFARCTION [None]
  - MYELOPROLIFERATIVE DISORDER [None]
  - ANXIETY [None]
  - RESTLESSNESS [None]
  - DEPRESSION [None]
  - LEFT VENTRICULAR FAILURE [None]
  - ATRIAL FIBRILLATION [None]
  - AGGRESSION [None]
